FAERS Safety Report 9338246 (Version 2)
Quarter: 2013Q2

REPORT INFORMATION
  Report Type: Spontaneous
  Country: US (occurrence: US)
  Receive Date: 20130610
  Receipt Date: 20130614
  Transmission Date: 20140414
  Serious: Yes (Hospitalization)
  Sender: FDA-Public Use
  Company Number: US-GLENMARK GENERICS INC.-2013GMK005853

PATIENT
  Age: 42 Year
  Sex: Male

DRUGS (1)
  1. TERBINAFINE HCL [Suspect]
     Indication: ONYCHOMYCOSIS
     Dosage: UNK
     Route: 048

REACTIONS (8)
  - Acute generalised exanthematous pustulosis [Recovered/Resolved]
  - Exfoliative rash [Recovered/Resolved]
  - Burning sensation [Recovered/Resolved]
  - Chills [Recovered/Resolved]
  - Rash erythematous [Recovered/Resolved]
  - Dermatitis exfoliative [Recovered/Resolved]
  - Rash pustular [Recovered/Resolved]
  - Skin exfoliation [Recovered/Resolved]
